FAERS Safety Report 8488944-5 (Version None)
Quarter: 2012Q3

REPORT INFORMATION
  Report Type: 
  Country: None (occurrence: None)
  Receive Date: 20120705
  Receipt Date: 20120703
  Transmission Date: 20120928
  Serious: No
  Sender: FDA-Public Use
  Company Number: US-PFIZER INC-2012160303

PATIENT
  Sex: Male

DRUGS (1)
  1. CRIZOTINIB [Suspect]
     Dosage: UNK
     Dates: start: 20110101

REACTIONS (4)
  - HEADACHE [None]
  - HYPOAESTHESIA [None]
  - GASTROOESOPHAGEAL REFLUX DISEASE [None]
  - SINUS DISORDER [None]
